FAERS Safety Report 5574846-0 (Version None)
Quarter: 2007Q4

REPORT INFORMATION
  Report Type: 
  Country: None (occurrence: None)
  Receive Date: 20071221
  Receipt Date: 20071221
  Transmission Date: 20080405
  Serious: Yes (Other)
  Sender: FDA-Public Use
  Company Number: None

PATIENT
  Sex: Male

DRUGS (1)
  1. PREVALITE [Suspect]
     Dosage: 4 GRAMS TWICE DAILY PO
     Route: 048
     Dates: start: 20071212, end: 20071220

REACTIONS (1)
  - VOMITING [None]
